FAERS Safety Report 20114335 (Version 1)
Quarter: 2021Q4

REPORT INFORMATION
  Report Type: Spontaneous
  Country: GB (occurrence: GB)
  Receive Date: 20211125
  Receipt Date: 20211125
  Transmission Date: 20220304
  Serious: Yes (Life-Threatening)
  Sender: FDA-Public Use
  Company Number: GB-NOVARTISPH-NVSC2021GB270063

PATIENT
  Age: 49 Year
  Sex: Female
  Weight: 69.85 kg

DRUGS (3)
  1. VOLTAROL [Suspect]
     Active Substance: DICLOFENAC SODIUM
     Indication: Pain
     Dosage: UNK
     Route: 065
  2. VOLTAROL [Suspect]
     Active Substance: DICLOFENAC SODIUM
     Dosage: UNK
     Route: 065
  3. BLACK COHOSH [Suspect]
     Active Substance: BLACK COHOSH
     Indication: Menopause
     Dosage: 1 DF, QD (BUT NOT EVERY DAY)
     Route: 048
     Dates: start: 20030101, end: 20040101

REACTIONS (1)
  - Renal cancer [Recovered/Resolved]

NARRATIVE: CASE EVENT DATE: 20210822
